FAERS Safety Report 8010450-2 (Version None)
Quarter: 2011Q4

REPORT INFORMATION
  Report Type: 
  Country: None (occurrence: None)
  Receive Date: 20111228
  Receipt Date: 20111219
  Transmission Date: 20120403
  Serious: No
  Sender: FDA-Public Use
  Company Number: US-B.I. PHARMACEUTICALS,INC./RIDGEFIELD-2011-BP-28383BP

PATIENT
  Sex: Male

DRUGS (9)
  1. PRADAXA [Suspect]
     Indication: ATRIAL FIBRILLATION
     Dosage: 300 MG
     Route: 048
     Dates: start: 20110901, end: 20111001
  2. TOPROL-XL [Concomitant]
     Indication: HYPERTENSION
     Dosage: 100 MG
     Route: 048
     Dates: start: 20060101
  3. SIMVASTATIN [Concomitant]
     Indication: BLOOD CHOLESTEROL INCREASED
     Dosage: 20 MG
     Route: 048
     Dates: start: 20010101
  4. VESICARE [Concomitant]
     Indication: POLLAKIURIA
     Dosage: 5 MG
     Route: 048
     Dates: start: 20110301
  5. VESICARE [Concomitant]
     Indication: MICTURITION URGENCY
  6. FISH OIL [Concomitant]
     Indication: CARDIOVASCULAR EVENT PROPHYLAXIS
  7. FISH OIL [Concomitant]
     Indication: SUPPLEMENTATION THERAPY
     Dosage: 1200 U
     Route: 048
     Dates: start: 20060101
  8. NORVASC [Concomitant]
     Indication: HYPERTENSION
     Dosage: 10 MG
     Route: 048
     Dates: start: 20060101
  9. CENTRUM SILVER [Concomitant]
     Indication: SUPPLEMENTATION THERAPY
     Route: 048
     Dates: start: 19960101

REACTIONS (5)
  - GAIT DISTURBANCE [None]
  - CONFUSIONAL STATE [None]
  - NEGLECT OF PERSONAL APPEARANCE [None]
  - ABDOMINAL DISCOMFORT [None]
  - DEMENTIA [None]
